FAERS Safety Report 23323353 (Version 1)
Quarter: 2023Q4

REPORT INFORMATION
  Report Type: Other
  Country: US (occurrence: None)
  Receive Date: 20231220
  Receipt Date: 20231220
  Transmission Date: 20240109
  Serious: No
  Sender: FDA-Public Use
  Company Number: US-ROCHE-3356208

PATIENT
  Age: 64 Year
  Sex: Female

DRUGS (7)
  1. RITUXIMAB [Suspect]
     Active Substance: RITUXIMAB
     Indication: Rheumatoid arthritis
     Route: 042
  2. PREDNISOLONE ACETATE [Concomitant]
     Active Substance: PREDNISOLONE ACETATE
     Route: 061
  3. CIPROFLOXACIN [Concomitant]
     Active Substance: CIPROFLOXACIN
     Route: 061
  4. AMPHOTERICIN B [Concomitant]
     Active Substance: AMPHOTERICIN B
  5. VORICONAZOLE [Concomitant]
     Active Substance: VORICONAZOLE
  6. NATAMYCIN [Concomitant]
     Active Substance: NATAMYCIN
  7. CLINDAMYCIN [Concomitant]
     Active Substance: CLINDAMYCIN
     Route: 061

REACTIONS (1)
  - Keratitis bacterial [Unknown]
